FAERS Safety Report 10035627 (Version 1)
Quarter: 2014Q1

REPORT INFORMATION
  Report Type: Spontaneous
  Country: US (occurrence: US)
  Receive Date: 20140325
  Receipt Date: 20140325
  Transmission Date: 20141002
  Serious: No
  Sender: FDA-Public Use
  Company Number: US-PFIZER INC-2014081897

PATIENT
  Age: 52 Year
  Sex: Female

DRUGS (9)
  1. GENOTROPIN [Suspect]
     Dosage: 0.4 MG, DAILY
     Route: 058
     Dates: start: 20131104
  2. AMITRIPTYLINE HYDROCHLORIDE [Concomitant]
     Dosage: 25 MG, UNK
  3. CABERGOLINE [Concomitant]
     Dosage: 0.5 MG, UNK
  4. CLONAZEPAM [Concomitant]
     Dosage: 0.25 MG, UNK
  5. MINIVELLE [Concomitant]
     Dosage: 0.075 MG, UNK
  6. PROGESTERONE [Concomitant]
     Dosage: 100 %, UNK
  7. SYNTHROID [Concomitant]
     Dosage: 75 UG, UNK
  8. VITAMIN D [Concomitant]
     Dosage: (1000 UN)
  9. ZOLPIDEM TARTRATE [Concomitant]
     Dosage: 10 MG, UNK

REACTIONS (4)
  - Arthropathy [Unknown]
  - Back pain [Unknown]
  - Arthralgia [Unknown]
  - Vaginal inflammation [Unknown]
